FAERS Safety Report 23206474 (Version 1)
Quarter: 2023Q4

REPORT INFORMATION
  Report Type: Other
  Country: US (occurrence: US)
  Receive Date: 20231120
  Receipt Date: 20231120
  Transmission Date: 20240110
  Serious: No
  Sender: FDA-Public Use
  Company Number: US-UROVANT SCIENCES GMBH-202306-URV-001250

PATIENT
  Sex: Female

DRUGS (5)
  1. GEMTESA [Suspect]
     Active Substance: VIBEGRON
     Indication: Product used for unknown indication
     Dosage: 75 MG, QD
     Route: 048
  2. GABAPENTIN [Concomitant]
     Active Substance: GABAPENTIN
     Indication: Pelvic floor dysfunction
     Dosage: UNK
  3. AMITRIPTYLINE [Concomitant]
     Active Substance: AMITRIPTYLINE
     Indication: Pelvic floor dysfunction
  4. BACLOFEN [Concomitant]
     Active Substance: BACLOFEN
     Indication: Pelvic floor dysfunction
  5. LIDOCAINE [Concomitant]
     Active Substance: LIDOCAINE
     Indication: Pelvic floor dysfunction

REACTIONS (1)
  - No adverse event [Unknown]
